FAERS Safety Report 4786894-9 (Version None)
Quarter: 2005Q3

REPORT INFORMATION
  Report Type: 
  Country: None (occurrence: None)
  Receive Date: 20050930
  Receipt Date: 20050916
  Transmission Date: 20060218
  Serious: Yes (Hospitalization, Other)
  Sender: FDA-Public Use
  Company Number: 2005BI017457

PATIENT
  Age: 33 Year
  Sex: Female

DRUGS (1)
  1. AVONEX [Suspect]
     Indication: MULTIPLE SCLEROSIS
     Dosage: 30 UG;QW; IM
     Route: 030
     Dates: start: 19980301

REACTIONS (7)
  - ADENOMYOSIS [None]
  - COLLAPSE OF LUNG [None]
  - INTERVERTEBRAL DISC PROTRUSION [None]
  - MALIGNANT SOFT TISSUE NEOPLASM [None]
  - PNEUMONIA ASPIRATION [None]
  - PROCEDURAL COMPLICATION [None]
  - RENAL FAILURE [None]
